FAERS Safety Report 5364739-6 (Version None)
Quarter: 2007Q2

REPORT INFORMATION
  Report Type: 
  Country: None (occurrence: None)
  Receive Date: 20070611
  Receipt Date: 20060427
  Transmission Date: 20071010
  Serious: Yes (Other)
  Sender: FDA-Public Use
  Company Number: 2006057212

PATIENT

DRUGS (1)
  1. ALDACTONE [Suspect]
     Indication: HYPERTENSION

REACTIONS (1)
  - BLOOD POTASSIUM INCREASED [None]
